FAERS Safety Report 25740005 (Version 3)
Quarter: 2025Q3

REPORT INFORMATION
  Report Type: Report from Study
  Country: AR (occurrence: AR)
  Receive Date: 20250829
  Receipt Date: 20250905
  Transmission Date: 20251020
  Serious: Yes (Other)
  Sender: JOHNSON AND JOHNSON
  Company Number: AR-JNJFOC-20250823015

PATIENT
  Age: 67 Year
  Sex: Female
  Weight: 115 kg

DRUGS (1)
  1. SIMPONI [Suspect]
     Active Substance: GOLIMUMAB
     Indication: Rheumatoid arthritis
     Route: 058
     Dates: start: 20240605

REACTIONS (5)
  - Rheumatoid arthritis [Not Recovered/Not Resolved]
  - Device issue [Unknown]
  - Product dose omission issue [Unknown]
  - Accidental exposure to product [Unknown]
  - Device deployment issue [Unknown]

NARRATIVE: CASE EVENT DATE: 20250816
